FAERS Safety Report 23454737 (Version 7)
Quarter: 2024Q3

REPORT INFORMATION
  Report Type: Spontaneous
  Country: DE (occurrence: DE)
  Receive Date: 20240130
  Receipt Date: 20240710
  Transmission Date: 20241017
  Serious: No
  Sender: ROCHE
  Company Number: DE-ROCHE-3498965

PATIENT
  Age: 15 Day
  Sex: Female
  Weight: 3.18 kg

DRUGS (1)
  1. EVRYSDI [Suspect]
     Active Substance: RISDIPLAM
     Indication: Spinal muscular atrophy
     Route: 048
     Dates: start: 20240119, end: 20240130

REACTIONS (4)
  - Tachycardia [Recovered/Resolved]
  - Atrial septal defect [Recovered/Resolved]
  - Left ventricular dysfunction [Recovered/Resolved]
  - Right ventricular systolic pressure increased [Recovered/Resolved]

NARRATIVE: CASE EVENT DATE: 20240124
